FAERS Safety Report 9492986 (Version 2)
Quarter: 2013Q3

REPORT INFORMATION
  Report Type: Spontaneous
  Country: US (occurrence: US)
  Receive Date: 20130902
  Receipt Date: 20130924
  Transmission Date: 20140515
  Serious: No
  Sender: FDA-Public Use
  Company Number: US-BIOGENIDEC-2013BI079334

PATIENT
  Sex: Female

DRUGS (1)
  1. AVONEX [Suspect]
     Indication: MULTIPLE SCLEROSIS
     Route: 030
     Dates: end: 2009

REACTIONS (6)
  - Impaired gastric emptying [Unknown]
  - Eyelid ptosis [Unknown]
  - Pupillary disorder [Unknown]
  - Bowel movement irregularity [Unknown]
  - Multiple sclerosis [Unknown]
  - General symptom [Unknown]
